FAERS Safety Report 22096262 (Version 1)
Quarter: 2023Q1

REPORT INFORMATION
  Report Type: Report from Study
  Country: FI (occurrence: FI)
  Receive Date: 20230315
  Receipt Date: 20230315
  Transmission Date: 20230418
  Serious: Yes (Hospitalization, Other)
  Sender: FDA-Public Use
  Company Number: FI-TAKEDA-2023TUS025484

PATIENT
  Age: 55 Year
  Sex: Female

DRUGS (23)
  1. TEDUGLUTIDE [Suspect]
     Active Substance: TEDUGLUTIDE
     Indication: Short-bowel syndrome
     Dosage: 2.8 MILLIGRAM, QD
     Route: 042
     Dates: start: 20211115
  2. TEDUGLUTIDE [Suspect]
     Active Substance: TEDUGLUTIDE
     Indication: Short-bowel syndrome
     Dosage: 2.8 MILLIGRAM, QD
     Route: 042
     Dates: start: 20211115
  3. TEDUGLUTIDE [Suspect]
     Active Substance: TEDUGLUTIDE
     Indication: Short-bowel syndrome
     Dosage: 2.8 MILLIGRAM, QD
     Route: 042
     Dates: start: 20211115
  4. TEDUGLUTIDE [Suspect]
     Active Substance: TEDUGLUTIDE
     Indication: Short-bowel syndrome
     Dosage: 2.8 MILLIGRAM, QD
     Route: 042
     Dates: start: 20211115
  5. TEDUGLUTIDE [Suspect]
     Active Substance: TEDUGLUTIDE
     Dosage: 2.8 MILLIGRAM, 4/WEEK
     Route: 042
     Dates: start: 20220621
  6. TEDUGLUTIDE [Suspect]
     Active Substance: TEDUGLUTIDE
     Dosage: 2.8 MILLIGRAM, 4/WEEK
     Route: 042
     Dates: start: 20220621
  7. TEDUGLUTIDE [Suspect]
     Active Substance: TEDUGLUTIDE
     Dosage: 2.8 MILLIGRAM, 4/WEEK
     Route: 042
     Dates: start: 20220621
  8. TEDUGLUTIDE [Suspect]
     Active Substance: TEDUGLUTIDE
     Dosage: 2.8 MILLIGRAM, 4/WEEK
     Route: 042
     Dates: start: 20220621
  9. TEDUGLUTIDE [Suspect]
     Active Substance: TEDUGLUTIDE
     Dosage: 1.4 MILLIGRAM, QD
     Route: 042
     Dates: start: 20220608, end: 20220715
  10. TEDUGLUTIDE [Suspect]
     Active Substance: TEDUGLUTIDE
     Dosage: 1.4 MILLIGRAM, QD
     Route: 042
     Dates: start: 20220608, end: 20220715
  11. TEDUGLUTIDE [Suspect]
     Active Substance: TEDUGLUTIDE
     Dosage: 1.4 MILLIGRAM, QD
     Route: 042
     Dates: start: 20220608, end: 20220715
  12. TEDUGLUTIDE [Suspect]
     Active Substance: TEDUGLUTIDE
     Dosage: 1.4 MILLIGRAM, QD
     Route: 042
     Dates: start: 20220608, end: 20220715
  13. TEDUGLUTIDE [Suspect]
     Active Substance: TEDUGLUTIDE
     Dosage: 2.8 MILLIGRAM, QD
     Route: 042
     Dates: start: 20220721, end: 20220926
  14. TEDUGLUTIDE [Suspect]
     Active Substance: TEDUGLUTIDE
     Dosage: 2.8 MILLIGRAM, QD
     Route: 042
     Dates: start: 20220721, end: 20220926
  15. TEDUGLUTIDE [Suspect]
     Active Substance: TEDUGLUTIDE
     Dosage: 2.8 MILLIGRAM, QD
     Route: 042
     Dates: start: 20220721, end: 20220926
  16. TEDUGLUTIDE [Suspect]
     Active Substance: TEDUGLUTIDE
     Dosage: 2.8 MILLIGRAM, QD
     Route: 042
     Dates: start: 20220721, end: 20220926
  17. SPIRONOLACTONE [Concomitant]
     Active Substance: SPIRONOLACTONE
     Indication: Ascites
     Dosage: 25 MILLIGRAM, QOD
     Route: 048
     Dates: start: 20220927
  18. VITAMIN A [Concomitant]
     Active Substance: VITAMIN A
     Indication: Hypovitaminosis
     Dosage: 1 DOSAGE FORM, BID
     Route: 048
     Dates: start: 20220115
  19. VITAMIN D [Concomitant]
     Active Substance: VITAMIN D NOS
     Indication: Hypovitaminosis
     Dosage: 1 DOSAGE FORM, BID
     Route: 048
     Dates: start: 20220115
  20. VITAMIN K [Concomitant]
     Active Substance: PHYTONADIONE
     Indication: Hypovitaminosis
     Dosage: 1 DOSAGE FORM, BID
     Route: 048
     Dates: start: 20220115
  21. CALCIUM CARBONATE [Concomitant]
     Active Substance: CALCIUM CARBONATE
     Indication: Osteoporosis
     Dosage: 500 MILLIGRAM, BID
     Route: 048
     Dates: start: 20220715
  22. CALCIUM CARBONATE [Concomitant]
     Active Substance: CALCIUM CARBONATE
     Indication: Hypocalcaemia
  23. ALFACALCIDOL [Concomitant]
     Active Substance: ALFACALCIDOL
     Indication: Hypocalcaemia
     Dosage: 0.25 MICROGRAM, QOD
     Route: 048
     Dates: start: 20221015, end: 20221128

REACTIONS (1)
  - Short-bowel syndrome [Recovered/Resolved]

NARRATIVE: CASE EVENT DATE: 20220613
